FAERS Safety Report 8440791-6 (Version None)
Quarter: 2012Q2

REPORT INFORMATION
  Report Type: 
  Country: None (occurrence: None)
  Receive Date: 20120615
  Receipt Date: 20120606
  Transmission Date: 20120825
  Serious: Yes (Hospitalization)
  Sender: FDA-Public Use
  Company Number: US-BAYER-2012-056371

PATIENT
  Age: 22 Year
  Sex: Female
  Weight: 99.773 kg

DRUGS (16)
  1. YASMIN [Suspect]
     Dosage: UNK
     Dates: start: 20090729, end: 20100823
  2. GLUCOPHAGE XR [Concomitant]
     Dosage: 1000 MG,DAILY
     Route: 048
  3. YASMIN [Suspect]
     Indication: CONTRACEPTION
     Dosage: UNK
     Dates: start: 20041207, end: 20050428
  4. DROSPIRENONE AND ETHINYL ESTRADIOL [Suspect]
     Indication: CONTRACEPTION
     Dosage: UNK
     Dates: start: 20080724, end: 20090714
  5. NORVASC [Concomitant]
     Dosage: 10 MG, DAILY
  6. METFORMIN HCL [Concomitant]
     Indication: POLYCYSTIC OVARIES
     Dosage: 1 PILL, ONCE A DAY, QD
     Dates: start: 20060419
  7. LISINOPRIL [Concomitant]
     Indication: BLOOD PRESSURE MANAGEMENT
     Dosage: 1 PILL, 1 [TIME] A DAY
     Dates: start: 20100718
  8. YAZ [Suspect]
     Indication: CONTRACEPTION
     Dosage: UNK
     Dates: start: 20060606, end: 20070607
  9. BACTRIM [Concomitant]
     Indication: URINARY TRACT INFECTION
  10. DROSPIRENONE AND ETHINYL ESTRADIOL [Suspect]
     Indication: POLYCYSTIC OVARIES
  11. METFORMIN HCL [Concomitant]
     Indication: BLOOD GLUCOSE ABNORMAL
  12. YASMIN [Suspect]
     Indication: POLYCYSTIC OVARIES
     Dosage: UNK
     Dates: start: 20070607, end: 20080727
  13. SULFAMETHOXAZOLE AND TRIMETHOPRIM DOUBLE STRENGTH [Concomitant]
     Indication: BACTERIAL INFECTION
     Dosage: 2 PILLS DAILY
     Dates: start: 20100817
  14. YAZ [Suspect]
     Indication: POLYCYSTIC OVARIES
  15. NAPROXEN (ALEVE) [Concomitant]
     Dosage: TWO TABLETS TWICE DAILY AS NEEDED
  16. IRON SULFATETHIAMIN COMPOUND TAB [Concomitant]
     Indication: IRON DEFICIENCY ANAEMIA

REACTIONS (4)
  - HEADACHE [None]
  - DEPRESSION [None]
  - INTRACRANIAL VENOUS SINUS THROMBOSIS [None]
  - DIZZINESS [None]
